FAERS Safety Report 16899252 (Version 1)
Quarter: 2019Q4

REPORT INFORMATION
  Report Type: Spontaneous
  Country: US (occurrence: US)
  Receive Date: 20190815
  Receipt Date: 20190815
  Transmission Date: 20200122
  Serious: No
  Sender: FDA-Public Use
  Company Number: None

PATIENT
  Age: 41 Year
  Sex: Male

DRUGS (1)
  1. LOVASTATIN TAB 10MG [Suspect]
     Active Substance: LOVASTATIN
     Route: 048
     Dates: start: 201903, end: 201907

REACTIONS (4)
  - Dizziness [None]
  - Head injury [None]
  - Therapy cessation [None]
  - Fall [None]

NARRATIVE: CASE EVENT DATE: 20190301
